FAERS Safety Report 26014220 (Version 1)
Quarter: 2025Q4

REPORT INFORMATION
  Report Type: Spontaneous
  Country: US (occurrence: US)
  Receive Date: 20251108
  Receipt Date: 20251108
  Transmission Date: 20260117
  Serious: No
  Sender: ELI LILLY AND COMPANY
  Company Number: US-ELI_LILLY_AND_COMPANY-US202511006166

PATIENT
  Age: 56 Year
  Sex: Female

DRUGS (1)
  1. OMVOH [Suspect]
     Active Substance: MIRIKIZUMAB-MRKZ
     Indication: Crohn^s disease
     Dosage: 100 MG, UNKNOWN
     Route: 065
     Dates: start: 20251024

REACTIONS (2)
  - Nausea [Unknown]
  - Condition aggravated [Unknown]
